FAERS Safety Report 12376404 (Version 5)
Quarter: 2016Q2

REPORT INFORMATION
  Report Type: Report from Study
  Country: US (occurrence: US)
  Receive Date: 20160517
  Receipt Date: 20160628
  Transmission Date: 20160815
  Serious: No
  Sender: FDA-Public Use
  Company Number: US-AMGEN-USASL2016060858

PATIENT
  Age: 65 Year
  Sex: Female

DRUGS (1)
  1. ENBREL [Suspect]
     Active Substance: ETANERCEPT
     Indication: RHEUMATOID ARTHRITIS
     Dosage: 50MG X 1 WEEKLY
     Route: 065
     Dates: start: 20160510

REACTIONS (8)
  - Injection site discomfort [Unknown]
  - Injection site bruising [Recovering/Resolving]
  - Osteoporosis [Unknown]
  - Injection site haemorrhage [Unknown]
  - Alopecia [Unknown]
  - Injection site pain [Unknown]
  - Platelet count decreased [Unknown]
  - Injection site erythema [Recovering/Resolving]

NARRATIVE: CASE EVENT DATE: 2016
